APPROVED DRUG PRODUCT: ISOVUE-300
Active Ingredient: IOPAMIDOL
Strength: 61%
Dosage Form/Route: INJECTABLE;INJECTION
Application: N020327 | Product #003
Applicant: BRACCO DIAGNOSTICS INC
Approved: Oct 12, 1994 | RLD: Yes | RS: Yes | Type: RX